FAERS Safety Report 14803632 (Version 1)
Quarter: 2018Q2

REPORT INFORMATION
  Report Type: Spontaneous
  Country: JP (occurrence: JP)
  Receive Date: 20180425
  Receipt Date: 20180425
  Transmission Date: 20180711
  Serious: Yes (Other)
  Sender: FDA-Public Use
  Company Number: JP-REGENERON PHARMACEUTICALS, INC.-2018-21354

PATIENT

DRUGS (4)
  1. EYLEA [Suspect]
     Active Substance: AFLIBERCEPT
     Indication: DIABETIC RETINAL OEDEMA
     Dosage: LEFT EYE, ONCE
     Route: 031
     Dates: start: 20180403, end: 20180403
  2. VEGAMOX [Concomitant]
     Active Substance: MOXIFLOXACIN HYDROCHLORIDE
     Indication: PRODUCT USED FOR UNKNOWN INDICATION
     Dosage: BEFORE OPERATION 3DAY,AFTER OPERATION 12DAY,TID
     Route: 047
     Dates: start: 20180330
  3. BISCOLET [Concomitant]
     Indication: PRODUCT USED FOR UNKNOWN INDICATION
     Dosage: 2 DROPS
     Route: 047
     Dates: start: 20180403
  4. OLOPATADINE. [Concomitant]
     Active Substance: OLOPATADINE
     Indication: HYPERSENSITIVITY
     Dosage: UNK UNK, BID
     Route: 048
     Dates: start: 20180320

REACTIONS (1)
  - Facial paralysis [Unknown]

NARRATIVE: CASE EVENT DATE: 20180409
